FAERS Safety Report 18521114 (Version 1)
Quarter: 2020Q4

REPORT INFORMATION
  Report Type: Spontaneous
  Country: US (occurrence: US)
  Receive Date: 20201118
  Receipt Date: 20201118
  Transmission Date: 20210114
  Serious: Yes (Other)
  Sender: FDA-Public Use
  Company Number: None

PATIENT
  Age: 91 Year
  Sex: Male
  Weight: 63.5 kg

DRUGS (22)
  1. INSULIN [Concomitant]
     Active Substance: INSULIN NOS
     Dates: start: 20201116, end: 20201116
  2. PROPOFOL. [Concomitant]
     Active Substance: PROPOFOL
     Dates: start: 20201116
  3. ETOMIDATE. [Concomitant]
     Active Substance: ETOMIDATE
     Dates: start: 20201116, end: 20201116
  4. HEPARIN [Concomitant]
     Active Substance: HEPARIN SODIUM
     Dates: start: 20201116
  5. VECURONIUM [Concomitant]
     Active Substance: VECURONIUM BROMIDE
     Dates: start: 20201116, end: 20201116
  6. MEROPENEM. [Concomitant]
     Active Substance: MEROPENEM
     Dates: start: 20201117
  7. ASPIRIN. [Concomitant]
     Active Substance: ASPIRIN
     Dates: start: 20201116
  8. REMDESIVIR. [Suspect]
     Active Substance: REMDESIVIR
     Indication: COVID-19
     Dosage: ?          OTHER FREQUENCY:ONCE;?
     Route: 042
     Dates: start: 20201116, end: 20201116
  9. BUMETANIDE. [Concomitant]
     Active Substance: BUMETANIDE
     Dates: start: 20201117
  10. GLUCOSE [Concomitant]
     Active Substance: DEXTROSE
     Dates: start: 20201116, end: 20201116
  11. VANCOMYCIN [Concomitant]
     Active Substance: VANCOMYCIN
     Dates: start: 20201115, end: 20201117
  12. CHLORHEXIDINE TOPICAL [Concomitant]
     Dates: start: 20201116
  13. MIDAZOLAM. [Concomitant]
     Active Substance: MIDAZOLAM
     Dates: start: 20201116, end: 20201116
  14. NOREPINEPHRINE. [Concomitant]
     Active Substance: NOREPINEPHRINE
     Dates: start: 20201117
  15. PANTOPRAZOLE [Concomitant]
     Active Substance: PANTOPRAZOLE
     Dates: start: 20201117
  16. SODIUM BICARBONATE. [Concomitant]
     Active Substance: SODIUM BICARBONATE
     Dates: start: 20201116
  17. DEXAMETHASONE. [Concomitant]
     Active Substance: DEXAMETHASONE
     Dates: start: 20201115
  18. FENTANYL. [Concomitant]
     Active Substance: FENTANYL
     Dates: start: 20201116
  19. ACETAMINOPHEN. [Concomitant]
     Active Substance: ACETAMINOPHEN
     Dates: start: 20201115, end: 20201115
  20. ALBUTEROL-IPRATROPIUM [Concomitant]
     Active Substance: ALBUTEROL\IPRATROPIUM
     Dates: start: 20201116
  21. CLOPIDOGREL [Concomitant]
     Active Substance: CLOPIDOGREL BISULFATE
     Dates: start: 20201116
  22. PIPERACILLIN AND TAZOBACTAM [Concomitant]
     Active Substance: PIPERACILLIN SODIUM\TAZOBACTAM SODIUM
     Dates: start: 20201115, end: 20201117

REACTIONS (15)
  - Acute respiratory distress syndrome [None]
  - Acute myocardial infarction [None]
  - Respiratory acidosis [None]
  - Therapy cessation [None]
  - Pneumonia [None]
  - Cardiac failure [None]
  - Staphylococcal bacteraemia [None]
  - Bradycardia [None]
  - Hypotension [None]
  - Sepsis [None]
  - Lymphopenia [None]
  - Aortic stenosis [None]
  - Fibrin D dimer increased [None]
  - Respiratory failure [None]
  - Acute kidney injury [None]

NARRATIVE: CASE EVENT DATE: 20201116
